FAERS Safety Report 6539355-0 (Version None)
Quarter: 2010Q1

REPORT INFORMATION
  Report Type: 
  Country: None (occurrence: None)
  Receive Date: 20100111
  Receipt Date: 20091231
  Transmission Date: 20100710
  Serious: Yes (Other)
  Sender: FDA-Public Use
  Company Number: 235610J09USA

PATIENT
  Age: 37 Year
  Sex: Female

DRUGS (4)
  1. REBIF [Suspect]
     Indication: MULTIPLE SCLEROSIS
     Dosage: 44 MCG, 3 IN 1 WEEKS, SUBCUTANEOUS
     Route: 058
     Dates: start: 20090609
  2. MULTIVITAMIN [Concomitant]
  3. ZEBUTOL (AXOTAL /00727001/) [Concomitant]
  4. EXTRA STRENGTH TYLENOL [Concomitant]

REACTIONS (5)
  - GALLBLADDER DISORDER [None]
  - HEADACHE [None]
  - HEPATIC ENZYME INCREASED [None]
  - NAUSEA [None]
  - WEIGHT DECREASED [None]
